FAERS Safety Report 16163445 (Version 1)
Quarter: 2019Q2

REPORT INFORMATION
  Report Type: Spontaneous
  Country: US (occurrence: US)
  Receive Date: 20190405
  Receipt Date: 20190405
  Transmission Date: 20190711
  Serious: Yes (Hospitalization)
  Sender: FDA-Public Use
  Company Number: US-ASTRAZENECA-2019SE49296

PATIENT
  Age: 77 Year
  Sex: Male

DRUGS (1)
  1. DURVALUMAB. [Suspect]
     Active Substance: DURVALUMAB
     Indication: LUNG ADENOCARCINOMA
     Dosage: DOSED Q 2WEEKS, DAY 35 OF THERAPY
     Route: 041

REACTIONS (2)
  - Radiation pneumonitis [Unknown]
  - Arthritis [Recovered/Resolved]
